FAERS Safety Report 26208041 (Version 1)
Quarter: 2025Q4

REPORT INFORMATION
  Report Type: Spontaneous
  Country: US (occurrence: None)
  Receive Date: 20251226
  Receipt Date: 20251226
  Transmission Date: 20260119
  Serious: Yes (Other)
  Sender: FDA-CTU
  Company Number: None

PATIENT
  Age: 65 Year
  Sex: Female

DRUGS (23)
  1. ENVARSUS XR [Suspect]
     Active Substance: TACROLIMUS
     Indication: Renal transplant
     Dosage: 5 MG DAILY ORAL
     Route: 048
  2. MYCOPHENOLATE MOFETIL [Suspect]
     Active Substance: MYCOPHENOLATE MOFETIL
     Indication: Renal transplant
     Dosage: 500 MG TWICE A DAY ORAL
     Route: 048
  3. ACETAMINOPHEN 160 MG/5ML SOLUTION [Concomitant]
  4. AMMONIUM LAC 12% LOTION [Concomitant]
  5. ASPIRIN 81 MG EC CHEWABLE TABLETS [Concomitant]
  6. ATORVASTATIN [Concomitant]
     Active Substance: ATORVASTATIN
  7. CALCIUM CITRATE + D3 TABLETS [Concomitant]
  8. DONEPEZIL 10 MG TABLETS [Concomitant]
  9. ESTRADIOL 0.01% VAG CREAM [Concomitant]
  10. FLUTICASONE [Concomitant]
     Active Substance: FLUTICASONE
  11. LAMIVUDINE 10 MG/ML ORAL SOLUTION [Concomitant]
  12. LIDOCAINE [Concomitant]
     Active Substance: LIDOCAINE
  13. METOPROLOL TARTRATE [Concomitant]
     Active Substance: METOPROLOL TARTRATE
  14. PANTOPRAZOLE SODIUM [Concomitant]
     Active Substance: PANTOPRAZOLE SODIUM
  15. POLYETH GLYCOL 3350 NF POWDER 238 GM [Concomitant]
  16. PREDNISONE [Concomitant]
     Active Substance: PREDNISONE
  17. PREMARIN VAGINAL [Concomitant]
     Active Substance: ESTROGENS, CONJUGATED
  18. SENNA 8.6 MG TABLETS [Concomitant]
  19. TRAZODONE 50 MG TABLETS [Concomitant]
  20. VENTOLIN HFA [Concomitant]
     Active Substance: ALBUTEROL SULFATE
  21. VITAMIN B1 100 MG TABLETS [Concomitant]
  22. VITAMIN B2 100 MG TABLETS [Concomitant]
  23. VITAMIN D3 1000 UNIT TABLETS [Concomitant]

REACTIONS (1)
  - Gastric cancer [None]

NARRATIVE: CASE EVENT DATE: 20251221
